FAERS Safety Report 10233169 (Version 1)
Quarter: 2014Q2

REPORT INFORMATION
  Report Type: Spontaneous
  Country: IT (occurrence: IT)
  Receive Date: 20140612
  Receipt Date: 20140612
  Transmission Date: 20141212
  Serious: Yes (Other)
  Sender: FDA-Public Use
  Company Number: IT-ABBVIE-14P-083-1246481-00

PATIENT
  Age: 64 Year
  Sex: Female

DRUGS (3)
  1. DEPAKIN [Suspect]
     Indication: SEIZURE LIKE PHENOMENA
     Route: 048
  2. TALOFEN [Suspect]
     Indication: INSOMNIA
     Dosage: FORM STRENGTH 4G/100ML
     Route: 048
  3. CARDIOASPIRIN [Concomitant]
     Indication: PRODUCT USED FOR UNKNOWN INDICATION

REACTIONS (3)
  - Convulsion [Recovering/Resolving]
  - Incorrect dose administered [Unknown]
  - Therapeutic response decreased [Unknown]
